FAERS Safety Report 6147213-9 (Version None)
Quarter: 2009Q2

REPORT INFORMATION
  Report Type: 
  Country: None (occurrence: None)
  Receive Date: 20090403
  Receipt Date: 20090323
  Transmission Date: 20091009
  Serious: Yes (Other)
  Sender: FDA-Public Use
  Company Number: 2009AP001221

PATIENT
  Age: 52 Year
  Sex: Male

DRUGS (2)
  1. IPRATROPIUM BROMIDE [Suspect]
     Indication: ACUTE RESPIRATORY FAILURE
     Dosage: INH
     Route: 055
  2. SALBUTAMOL [Concomitant]

REACTIONS (2)
  - ACCIDENTAL EXPOSURE [None]
  - PUPILS UNEQUAL [None]
